FAERS Safety Report 18534811 (Version 2)
Quarter: 2020Q4

REPORT INFORMATION
  Report Type: Spontaneous
  Country: US (occurrence: US)
  Receive Date: 20201123
  Receipt Date: 20201130
  Transmission Date: 20210114
  Serious: Yes (Hospitalization, Other)
  Sender: FDA-Public Use
  Company Number: US-BIOGEN-2020BI00945621

PATIENT
  Age: 41 Year
  Sex: Female

DRUGS (1)
  1. TYSABRI [Suspect]
     Active Substance: NATALIZUMAB
     Indication: MULTIPLE SCLEROSIS
     Route: 065
     Dates: start: 20200831

REACTIONS (10)
  - Syringomyelia [Not Recovered/Not Resolved]
  - Pulmonary oedema [Unknown]
  - Hormone level abnormal [Unknown]
  - Adrenal insufficiency [Unknown]
  - Mast cell activation syndrome [Not Recovered/Not Resolved]
  - Pneumothorax [Unknown]
  - Musculoskeletal discomfort [Not Recovered/Not Resolved]
  - Somnolence [Unknown]
  - Head discomfort [Not Recovered/Not Resolved]
  - Fatigue [Unknown]

NARRATIVE: CASE EVENT DATE: 202008
